FAERS Safety Report 10784999 (Version 1)
Quarter: 2015Q1

REPORT INFORMATION
  Report Type: Spontaneous
  Country: US (occurrence: US)
  Receive Date: 20150211
  Receipt Date: 20150211
  Transmission Date: 20150721
  Serious: No
  Sender: FDA-Public Use
  Company Number: US-GLAXOSMITHKLINE-A1075702A

PATIENT

DRUGS (4)
  1. LAMICTAL [Suspect]
     Active Substance: LAMOTRIGINE
     Indication: AFFECTIVE DISORDER
     Dosage: 100MG
     Route: 048
     Dates: start: 2011
  2. PRE-NATAL VITAMIN [Concomitant]
  3. ACID REFLUX MED. [Concomitant]
  4. TUMS [Concomitant]
     Active Substance: CALCIUM CARBONATE

REACTIONS (2)
  - Gastrooesophageal reflux disease [Unknown]
  - Exposure during pregnancy [Unknown]
